FAERS Safety Report 8075082-9 (Version None)
Quarter: 2012Q1

REPORT INFORMATION
  Report Type: 
  Country: None (occurrence: None)
  Receive Date: 20120127
  Receipt Date: 20120119
  Transmission Date: 20120608
  Serious: No
  Sender: FDA-Public Use
  Company Number: US-BIOGENIDEC-2012BI002513

PATIENT
  Sex: Female

DRUGS (2)
  1. TYSABRI [Suspect]
     Indication: MULTIPLE SCLEROSIS
     Route: 042
     Dates: start: 20090624, end: 20100506
  2. TYSABRI [Suspect]
     Route: 042
     Dates: start: 20120118

REACTIONS (3)
  - HYPOAESTHESIA [None]
  - FATIGUE [None]
  - VISION BLURRED [None]
